FAERS Safety Report 5224497-2 (Version None)
Quarter: 2007Q1

REPORT INFORMATION
  Report Type: 
  Country: None (occurrence: None)
  Receive Date: 20070130
  Receipt Date: 20061222
  Transmission Date: 20070707
  Serious: Yes (Other)
  Sender: FDA-Public Use
  Company Number: US-PFIZER INC-2007003104

PATIENT
  Sex: Female
  Weight: 88.5 kg

DRUGS (3)
  1. BEXTRA [Suspect]
  2. VIOXX [Suspect]
  3. VICODIN [Concomitant]

REACTIONS (1)
  - STEVENS-JOHNSON SYNDROME [None]
